FAERS Safety Report 14782033 (Version 4)
Quarter: 2019Q1

REPORT INFORMATION
  Report Type: Spontaneous
  Country: CA (occurrence: CA)
  Receive Date: 20180420
  Receipt Date: 20190314
  Transmission Date: 20190417
  Serious: Yes (Other)
  Sender: FDA-Public Use
  Company Number: CA-ORION CORPORATION ORION PHARMA-TREX2018-1175

PATIENT
  Age: 39 Year
  Sex: Female

DRUGS (4)
  1. INFLECTRA [Concomitant]
     Active Substance: INFLIXIMAB-DYYB
     Indication: CROHN^S DISEASE
     Dosage: WEEK 0, 2, 6, THEN EVERY 8 WEEKS?LAST INFUSION DATE: 25-JAN-2019
     Route: 042
     Dates: start: 20180504
  2. FOLIC ACID. [Concomitant]
     Active Substance: FOLIC ACID
     Route: 065
  3. PREDNISONE. [Concomitant]
     Active Substance: PREDNISONE
     Route: 065
     Dates: start: 2016
  4. METHOTREXATE (TRADE NAME UNKNOWN) [Suspect]
     Active Substance: METHOTREXATE
     Route: 048
     Dates: start: 2016

REACTIONS (4)
  - Skin ulcer [Unknown]
  - Uveitis [Unknown]
  - Drug ineffective [Not Recovered/Not Resolved]
  - Pyoderma gangrenosum [Unknown]
